FAERS Safety Report 5610702-7 (Version None)
Quarter: 2008Q1

REPORT INFORMATION
  Report Type: 
  Country: None (occurrence: None)
  Receive Date: 20080130
  Receipt Date: 20080130
  Transmission Date: 20080703
  Serious: Yes (Life-Threatening, Hospitalization, Disabling)
  Sender: FDA-Public Use
  Company Number: None

PATIENT
  Age: 28 Year
  Sex: Female
  Weight: 43.0917 kg

DRUGS (1)
  1. PROVIGIL [Suspect]
     Indication: NARCOLEPSY
     Dosage: 200MG  ONCE A DAY  PO
     Route: 048
     Dates: start: 20050801, end: 20060428

REACTIONS (7)
  - DRUG ABUSE [None]
  - ECONOMIC PROBLEM [None]
  - HALLUCINATION [None]
  - INCORRECT DOSE ADMINISTERED [None]
  - LOSS OF EMPLOYMENT [None]
  - PSYCHOTIC DISORDER [None]
  - SELF-MEDICATION [None]
